FAERS Safety Report 5166414-X (Version None)
Quarter: 2006Q4

REPORT INFORMATION
  Report Type: 
  Country: None (occurrence: None)
  Receive Date: 20061207
  Receipt Date: 20060925
  Transmission Date: 20070319
  Serious: Yes (Hospitalization)
  Sender: FDA-Public Use
  Company Number: FR-SP-2006-02525

PATIENT
  Age: 64 Year
  Sex: Male
  Weight: 74 kg

DRUGS (2)
  1. IMMUCYST [Suspect]
     Indication: BLADDER CANCER
     Route: 065
     Dates: start: 20060509, end: 20060606
  2. IMMUCYST [Suspect]
     Route: 065
     Dates: start: 20060509, end: 20060606

REACTIONS (4)
  - ABDOMINAL PAIN [None]
  - DYSURIA [None]
  - LIPASE INCREASED [None]
  - PANCREATITIS ACUTE [None]
